FAERS Safety Report 5446602-5 (Version None)
Quarter: 2007Q3

REPORT INFORMATION
  Report Type: 
  Country: None (occurrence: None)
  Receive Date: 20070907
  Receipt Date: 20070828
  Transmission Date: 20080115
  Serious: Yes (Other)
  Sender: FDA-Public Use
  Company Number: US-PFIZER INC-2007061433

PATIENT
  Sex: Female
  Weight: 93.6 kg

DRUGS (10)
  1. NEURONTIN [Suspect]
     Indication: MULTIPLE SCLEROSIS
  2. PAMELOR [Concomitant]
  3. PRILOSEC [Concomitant]
  4. ASACOL [Concomitant]
  5. KLOR-CON [Concomitant]
  6. PREDNISONE [Concomitant]
  7. DRUG, UNSPECIFIED [Concomitant]
  8. VITAMIN D [Concomitant]
  9. IRON [Concomitant]
  10. LOPERAMIDE HYDROCHLORIDE [Concomitant]

REACTIONS (2)
  - COLITIS [None]
  - HAEMORRHAGE [None]
